FAERS Safety Report 8304306-5 (Version None)
Quarter: 2012Q2

REPORT INFORMATION
  Report Type: 
  Country: None (occurrence: None)
  Receive Date: 20120423
  Receipt Date: 20120423
  Transmission Date: 20120825
  Serious: No
  Sender: FDA-Public Use
  Company Number: None

PATIENT
  Age: 39 Year
  Sex: Female
  Weight: 68.038 kg

DRUGS (3)
  1. OPANA ER [Suspect]
     Indication: SPINAL CORD DISORDER
     Dosage: 1 TABLET
     Route: 048
     Dates: start: 20120403, end: 20120405
  2. OPANA ER [Suspect]
     Indication: INTERVERTEBRAL DISC DEGENERATION
     Dosage: 1 TABLET
     Route: 048
     Dates: start: 20120403, end: 20120405
  3. OPANA ER [Concomitant]

REACTIONS (4)
  - PRODUCT FORMULATION ISSUE [None]
  - PRODUCT SUBSTITUTION ISSUE [None]
  - DRUG INEFFECTIVE [None]
  - MEDICATION RESIDUE [None]
